FAERS Safety Report 7815656-0 (Version None)
Quarter: 2011Q4

REPORT INFORMATION
  Report Type: 
  Country: None (occurrence: None)
  Receive Date: 20111014
  Receipt Date: 20111004
  Transmission Date: 20120403
  Serious: No
  Sender: FDA-Public Use
  Company Number: GB-NOVOPROD-333898

PATIENT

DRUGS (1)
  1. LIRAGLUTIDE FLEXPEN [Suspect]
     Indication: OBESITY

REACTIONS (3)
  - FEELING OF BODY TEMPERATURE CHANGE [None]
  - PYREXIA [None]
  - DIARRHOEA [None]
